FAERS Safety Report 4661540-3 (Version None)
Quarter: 2005Q2

REPORT INFORMATION
  Report Type: 
  Country: None (occurrence: None)
  Receive Date: 20050513
  Receipt Date: 20050503
  Transmission Date: 20051028
  Serious: Yes (Other)
  Sender: FDA-Public Use
  Company Number: PR-AMGEN-US131316

PATIENT

DRUGS (1)
  1. PROCRIT [Suspect]
     Indication: RENAL FAILURE CHRONIC
     Route: 065

REACTIONS (2)
  - SIDEROBLASTIC ANAEMIA [None]
  - THERAPEUTIC RESPONSE DECREASED [None]
